FAERS Safety Report 12276270 (Version 1)
Quarter: 2016Q2

REPORT INFORMATION
  Report Type: Spontaneous
  Country: US (occurrence: None)
  Receive Date: 20160415
  Receipt Date: 20160415
  Transmission Date: 20160815
  Serious: Yes (Hospitalization)
  Sender: FDA-Public Use
  Company Number: None

PATIENT
  Age: 57 Year
  Sex: Female
  Weight: 84.82 kg

DRUGS (10)
  1. DOXIL [Suspect]
     Active Substance: DOXORUBICIN HYDROCHLORIDE
     Indication: OVARIAN CANCER
     Dosage: ONCE Q 18 DAYS
     Route: 042
     Dates: start: 20160322, end: 20160322
  2. CARBOPLATIN. [Suspect]
     Active Substance: CARBOPLATIN
     Dosage: ONCE Q 28 DAYS
     Route: 042
     Dates: start: 20160322, end: 20160322
  3. COLACE [Concomitant]
     Active Substance: DOCUSATE SODIUM
  4. EVEROLIMUS [Concomitant]
     Active Substance: EVEROLIMUS
  5. DILAUDID [Concomitant]
     Active Substance: HYDROMORPHONE HYDROCHLORIDE
  6. MIRALAX [Concomitant]
     Active Substance: POLYETHYLENE GLYCOL 3350
  7. RESTORIL [Concomitant]
     Active Substance: TEMAZEPAM
  8. DURAGESIC [Concomitant]
     Active Substance: FENTANYL
  9. ATIVAN [Concomitant]
     Active Substance: LORAZEPAM
  10. ZOFRAN [Concomitant]
     Active Substance: ONDANSETRON HYDROCHLORIDE

REACTIONS (7)
  - White blood cell count decreased [None]
  - Platelet count decreased [None]
  - Neutrophil count decreased [None]
  - Deep vein thrombosis [None]
  - Anaemia [None]
  - Pulmonary embolism [None]
  - Tachycardia [None]

NARRATIVE: CASE EVENT DATE: 20160408
